FAERS Safety Report 6163332-5 (Version None)
Quarter: 2009Q2

REPORT INFORMATION
  Report Type: 
  Country: None (occurrence: None)
  Receive Date: 20090422
  Receipt Date: 20090420
  Transmission Date: 20091009
  Serious: Yes (Hospitalization)
  Sender: FDA-Public Use
  Company Number: KR-BRISTOL-MYERS SQUIBB COMPANY-14593362

PATIENT
  Age: 46 Year
  Sex: Male

DRUGS (6)
  1. BARACLUDE [Suspect]
     Indication: HEPATITIS B
     Dates: start: 20090330
  2. ATENOLOL [Suspect]
     Indication: HYPERTENSION
  3. ALCOHOL [Suspect]
  4. LOSARTAN POTASSIUM [Suspect]
     Indication: HYPERTENSION
  5. HYDROCHLOROTHIAZIDE [Suspect]
     Indication: HYPERTENSION
  6. URSA [Suspect]

REACTIONS (7)
  - ALANINE AMINOTRANSFERASE INCREASED [None]
  - ASPARTATE AMINOTRANSFERASE INCREASED [None]
  - BLOOD ALKALINE PHOSPHATASE INCREASED [None]
  - BLOOD CREATININE INCREASED [None]
  - BLOOD UREA INCREASED [None]
  - GAMMA-GLUTAMYLTRANSFERASE INCREASED [None]
  - JAUNDICE [None]
